FAERS Safety Report 24195906 (Version 4)
Quarter: 2024Q3

REPORT INFORMATION
  Report Type: Report from Study
  Country: PR (occurrence: PR)
  Receive Date: 20240809
  Receipt Date: 20240925
  Transmission Date: 20241016
  Serious: Yes (Hospitalization, Other)
  Sender: ABBVIE
  Company Number: US-ABBVIE-5872435

PATIENT
  Age: 26 Year
  Sex: Female
  Weight: 70.76 kg

DRUGS (2)
  1. RINVOQ [Suspect]
     Active Substance: UPADACITINIB
     Indication: Crohn^s disease
     Dosage: FORM STRENGTH: 45 MG
     Route: 048
     Dates: start: 202303, end: 20231220
  2. TYGACIL [Suspect]
     Active Substance: TIGECYCLINE
     Indication: Bacterial infection
     Route: 065
     Dates: start: 2024

REACTIONS (15)
  - Renal failure [Recovered/Resolved]
  - Diarrhoea [Recovered/Resolved]
  - Thrombosis [Not Recovered/Not Resolved]
  - Internal haemorrhage [Recovered/Resolved]
  - Blister [Recovered/Resolved]
  - Dehydration [Recovered/Resolved]
  - Vomiting [Recovered/Resolved]
  - Gait inability [Not Recovered/Not Resolved]
  - Extremity necrosis [Recovered/Resolved]
  - Gangrene [Not Recovered/Not Resolved]
  - Nausea [Recovered/Resolved]
  - Gastrointestinal injury [Unknown]
  - Bacterial infection [Recovering/Resolving]
  - Purpura fulminans [Unknown]
  - Intestinal haemorrhage [Unknown]

NARRATIVE: CASE EVENT DATE: 20231222
